FAERS Safety Report 7153516-1 (Version None)
Quarter: 2010Q4

REPORT INFORMATION
  Report Type: 
  Country: None (occurrence: None)
  Receive Date: 20101213
  Receipt Date: 20101206
  Transmission Date: 20110411
  Serious: Yes (Hospitalization)
  Sender: FDA-Public Use
  Company Number: B0688729A

PATIENT
  Age: 52 Year
  Sex: Female

DRUGS (2)
  1. TYVERB [Suspect]
     Indication: BREAST CANCER
     Dosage: 1250MG PER DAY
     Route: 048
     Dates: start: 20091103, end: 20091204
  2. CAPECITABINE [Concomitant]
     Indication: BREAST CANCER
     Dosage: 400MG PER DAY
     Route: 048
     Dates: start: 20090713, end: 20091104

REACTIONS (1)
  - VENOUS THROMBOSIS [None]
